FAERS Safety Report 5230284-1 (Version None)
Quarter: 2007Q1

REPORT INFORMATION
  Report Type: 
  Country: None (occurrence: None)
  Receive Date: 20070206
  Receipt Date: 20061121
  Transmission Date: 20070707
  Serious: No
  Sender: FDA-Public Use
  Company Number: US-GLAXOSMITHKLINE-A0628295A

PATIENT
  Age: 35 Year
  Sex: Male

DRUGS (3)
  1. PAXIL CR [Suspect]
     Indication: SLEEP DISORDER
     Route: 048
  2. BLOOD PRESSURE MEDICATION [Concomitant]
  3. NEXIUM [Concomitant]

REACTIONS (6)
  - ABNORMAL DREAMS [None]
  - DIZZINESS [None]
  - DRUG INEFFECTIVE [None]
  - HEADACHE [None]
  - HYPERHIDROSIS [None]
  - SEXUAL DYSFUNCTION [None]
